FAERS Safety Report 25422135 (Version 1)
Quarter: 2025Q2

REPORT INFORMATION
  Report Type: Spontaneous
  Country: US (occurrence: US)
  Receive Date: 20250611
  Receipt Date: 20250611
  Transmission Date: 20250716
  Serious: Yes (Hospitalization)
  Sender: MYLAN
  Company Number: US-MYLANLABS-2025M1048731

PATIENT
  Age: 44 Year
  Sex: Male

DRUGS (4)
  1. NITROGLYCERIN [Suspect]
     Active Substance: NITROGLYCERIN
     Indication: Angina pectoris
  2. NITROGLYCERIN [Suspect]
     Active Substance: NITROGLYCERIN
     Indication: Angina pectoris
  3. PRASUGREL [Suspect]
     Active Substance: PRASUGREL
     Indication: Angina pectoris
     Dosage: UNK, QD
  4. HEPARIN [Suspect]
     Active Substance: HEPARIN SODIUM
     Indication: Angina pectoris

REACTIONS (1)
  - Drug ineffective [Unknown]
